FAERS Safety Report 8229701-4 (Version None)
Quarter: 2012Q1

REPORT INFORMATION
  Report Type: 
  Country: None (occurrence: None)
  Receive Date: 20120322
  Receipt Date: 20120313
  Transmission Date: 20120608
  Serious: Yes (Life-Threatening, Hospitalization, Other)
  Sender: FDA-Public Use
  Company Number: US-ABBOTT-12P-163-0914374-00

PATIENT
  Sex: Female

DRUGS (2)
  1. METHOTREXATE [Concomitant]
     Indication: PRODUCT USED FOR UNKNOWN INDICATION
     Dates: start: 20091001
  2. HUMIRA [Suspect]
     Indication: PRODUCT USED FOR UNKNOWN INDICATION
     Route: 058
     Dates: start: 20091005, end: 20100501

REACTIONS (18)
  - UNRESPONSIVE TO STIMULI [None]
  - DEPRESSED LEVEL OF CONSCIOUSNESS [None]
  - COUGH [None]
  - DYSPNOEA [None]
  - DEHYDRATION [None]
  - MALAISE [None]
  - ABASIA [None]
  - ACTIVITIES OF DAILY LIVING IMPAIRED [None]
  - CHEST PAIN [None]
  - PYREXIA [None]
  - LYMPHADENOPATHY [None]
  - ASTHENIA [None]
  - DEPRESSION [None]
  - HISTOPLASMOSIS [None]
  - ATRIAL FIBRILLATION [None]
  - PANCYTOPENIA [None]
  - MULTI-ORGAN FAILURE [None]
  - DYSSTASIA [None]
